FAERS Safety Report 6508527-3 (Version None)
Quarter: 2009Q4

REPORT INFORMATION
  Report Type: 
  Country: None (occurrence: None)
  Receive Date: 20091221
  Receipt Date: 20081201
  Transmission Date: 20100525
  Serious: No
  Sender: FDA-Public Use
  Company Number: US-ASTRAZENECA-2008UW26722

PATIENT
  Age: 66 Year
  Sex: Male
  Weight: 97.5 kg

DRUGS (8)
  1. CRESTOR [Suspect]
     Indication: BLOOD CHOLESTEROL INCREASED
     Route: 048
     Dates: start: 20080901
  2. TENORMIN [Concomitant]
     Dosage: EVERY DAY
     Route: 048
  3. ACCUPRIL [Concomitant]
     Dosage: EVERY DAY
  4. ZOLOFT [Concomitant]
     Dosage: EVERY DAY
  5. ASPIRIN [Concomitant]
     Dosage: EVERY DAY
  6. M.V.I. [Concomitant]
     Dosage: EVERY DAY
  7. PLANT STEROLS [Concomitant]
  8. NIACIN TYPE VITAMINS [Concomitant]

REACTIONS (2)
  - GAIT DISTURBANCE [None]
  - MYALGIA [None]
